FAERS Safety Report 25776580 (Version 1)
Quarter: 2025Q3

REPORT INFORMATION
  Report Type: Spontaneous
  Country: US (occurrence: US)
  Receive Date: 20250909
  Receipt Date: 20250909
  Transmission Date: 20251021
  Serious: No
  Sender: DOMPE FARMACEUTICI
  Company Number: US-FARMAPROD-202503-0738

PATIENT
  Sex: Female
  Weight: 49.4 kg

DRUGS (20)
  1. OXERVATE [Suspect]
     Active Substance: CENEGERMIN-BKBJ
     Indication: Neurotrophic keratopathy
     Route: 047
     Dates: start: 20250127
  2. XIIDRA [Concomitant]
     Active Substance: LIFITEGRAST
  3. ZONISAMIDE [Concomitant]
     Active Substance: ZONISAMIDE
  4. LINZESS [Concomitant]
     Active Substance: LINACLOTIDE
  5. VITAMIN C [Concomitant]
     Active Substance: ASCORBIC ACID
  6. MIDODRINE HYDROCHLORIDE [Concomitant]
     Active Substance: MIDODRINE HYDROCHLORIDE
  7. TIZANIDINE HYDROCHLORIDE [Concomitant]
     Active Substance: TIZANIDINE HYDROCHLORIDE
  8. MORPHINE SULFATE [Concomitant]
     Active Substance: MORPHINE SULFATE
  9. BIOTIN [Concomitant]
     Active Substance: BIOTIN
  10. NEXIUM [Concomitant]
     Active Substance: ESOMEPRAZOLE MAGNESIUM
  11. ELIQUIS [Concomitant]
     Active Substance: APIXABAN
  12. QUVIVIQ [Concomitant]
     Active Substance: DARIDOREXANT
  13. BUSPIRONE HCL [Concomitant]
     Active Substance: BUSPIRONE HYDROCHLORIDE
  14. OLANZAPINE [Concomitant]
     Active Substance: OLANZAPINE
  15. CALCIUM [Concomitant]
     Active Substance: CALCIUM
  16. COMBIVENT RESPIMAT [Concomitant]
     Active Substance: ALBUTEROL SULFATE\IPRATROPIUM BROMIDE
  17. ZINC [Concomitant]
     Active Substance: ZINC
  18. DULOXETINE HYDROCHLORIDE [Concomitant]
     Active Substance: DULOXETINE HYDROCHLORIDE
  19. NUCYNTA [Concomitant]
     Active Substance: TAPENTADOL HYDROCHLORIDE
  20. MIRTAZAPINE [Concomitant]
     Active Substance: MIRTAZAPINE

REACTIONS (3)
  - Eye infection [Unknown]
  - Ocular hyperaemia [Unknown]
  - Eye discharge [Unknown]
